FAERS Safety Report 8817869 (Version 1)
Quarter: 2012Q4

REPORT INFORMATION
  Report Type: 
  Country: US (occurrence: US)
  Receive Date: 20121004
  Receipt Date: 20121004
  Transmission Date: 20130627
  Serious: Yes (Death)
  Sender: FDA-Public Use
  Company Number: US-ROCHE-GNE247319

PATIENT
  Age: 24 Year
  Sex: Female
  Weight: 54.48 kg

DRUGS (5)
  1. RITUXAN [Suspect]
     Indication: NEUROMYELITIS OPTICA
     Route: 042
     Dates: start: 20070822
  2. RITUXAN [Suspect]
     Indication: OFF LABEL USE
  3. NEURONTIN [Concomitant]
     Indication: PRODUCT USED FOR UNKNOWN INDICATION
     Route: 065
  4. STEROIDS (UNK INGREDIENTS) [Concomitant]
     Indication: NEUROMYELITIS OPTICA
  5. GRTPA [Concomitant]
     Indication: NEUROMYELITIS OPTICA

REACTIONS (3)
  - Cardio-respiratory arrest [Fatal]
  - Infusion related reaction [Fatal]
  - Dyspnoea [Unknown]
